FAERS Safety Report 4823887-7 (Version None)
Quarter: 2005Q4

REPORT INFORMATION
  Report Type: 
  Country: None (occurrence: None)
  Receive Date: 20051109
  Receipt Date: 20050919
  Transmission Date: 20060501
  Serious: Yes (Hospitalization)
  Sender: FDA-Public Use
  Company Number: PHEH2005US10445

PATIENT
  Age: 50 Year
  Sex: Male

DRUGS (7)
  1. CLOZARIL [Suspect]
     Indication: PSYCHOTIC DISORDER
     Dosage: 250MG QAM, 275MG QHS
     Route: 048
     Dates: end: 20050901
  2. CLOZARIL [Suspect]
     Dosage: 250 MG, BID
     Route: 048
     Dates: start: 20050901
  3. COMBIVENT [Concomitant]
  4. LORAZEPAM [Concomitant]
     Indication: ANXIETY
     Dosage: 2 MG, QHS
     Route: 048
  5. BENZTROPEINE [Concomitant]
     Indication: EXTRAPYRAMIDAL DISORDER
     Dosage: 2 MG, QHS
     Route: 048
  6. ZYPREXA [Concomitant]
     Indication: PSYCHOTIC DISORDER
     Dosage: 5 MG, QHS
     Route: 048
  7. ENALAPRIL [Concomitant]
     Indication: HYPERTENSION
     Dosage: 5 MG, BID
     Route: 048

REACTIONS (7)
  - AGITATION [None]
  - LEUKOCYTOSIS [None]
  - LUNG INFILTRATION [None]
  - LUNG NEOPLASM [None]
  - PNEUMONIA [None]
  - PNEUMONITIS [None]
  - TACHYCARDIA [None]
